FAERS Safety Report 6948384 (Version 2)
Quarter: 2025Q1

REPORT INFORMATION
  Report Type: Spontaneous
  Country: US (occurrence: US)
  Receive Date: 20090323
  Receipt Date: 20250123
  Transmission Date: 20250409
  Serious: Yes (Other)
  Sender: SANOFI AVENTIS
  Company Number: US-AVENTIS-200912137US

PATIENT
  Age: 85 Year
  Sex: Female

DRUGS (1)
  1. LASIX [Suspect]
     Active Substance: FUROSEMIDE
     Indication: Cardiac failure congestive
     Route: 048

REACTIONS (2)
  - Choroidal detachment [Recovered/Resolved]
  - Therapeutic response unexpected [Recovered/Resolved]
